FAERS Safety Report 8590015-4 (Version None)
Quarter: 2012Q3

REPORT INFORMATION
  Report Type: 
  Country: None (occurrence: None)
  Receive Date: 20120813
  Receipt Date: 20120809
  Transmission Date: 20120928
  Serious: Yes (Hospitalization)
  Sender: FDA-Public Use
  Company Number: US-ROCHE-1099636

PATIENT
  Sex: Female

DRUGS (9)
  1. WARFARIN SODIUM [Concomitant]
  2. FLUOXETINE HCL [Concomitant]
  3. TELAPREVIR [Suspect]
     Indication: HEPATITIS C
     Dates: start: 20120705
  4. METFORMIN HYDROCHLORIDE [Concomitant]
  5. BISACODYL [Concomitant]
  6. PEGINTERFERON ALFA-2A [Suspect]
     Indication: HEPATITIS C
     Dates: start: 20120705
  7. RIBAVIRIN [Suspect]
     Indication: HEPATITIS C
     Dates: start: 20120705
  8. TRAZODONE HYDROCHLORIDE [Concomitant]
  9. FERROUS SULFATE TAB [Concomitant]

REACTIONS (4)
  - BLOOD IRON DECREASED [None]
  - RED BLOOD CELL COUNT DECREASED [None]
  - DRUG DOSE OMISSION [None]
  - DYSPNOEA [None]
